FAERS Safety Report 4914153-X (Version None)
Quarter: 2006Q1

REPORT INFORMATION
  Report Type: 
  Country: None (occurrence: None)
  Receive Date: 20060213
  Receipt Date: 20060206
  Transmission Date: 20060701
  Serious: Yes (Life-Threatening, Hospitalization)
  Sender: FDA-Public Use
  Company Number: 2006-138153-NL

PATIENT
  Age: 21 Year
  Sex: Male

DRUGS (2)
  1. MIRTAZAPINE [Suspect]
     Indication: DEPRESSION
     Dosage: 45 MG ORAL
     Route: 048
     Dates: start: 20040901, end: 20060116
  2. OLANZAPINE [Concomitant]

REACTIONS (3)
  - AGRANULOCYTOSIS [None]
  - PHARYNGITIS [None]
  - PYREXIA [None]
